FAERS Safety Report 8918331 (Version 1)
Quarter: 2012Q4

REPORT INFORMATION
  Report Type: 
  Country: US (occurrence: US)
  Receive Date: 20121120
  Receipt Date: 20121120
  Transmission Date: 20130627
  Serious: No
  Sender: FDA-Public Use
  Company Number: US-ASTRAZENECA-2012SE16895

PATIENT
  Age: 56 Year
  Sex: Female

DRUGS (3)
  1. NEXIUM [Suspect]
     Route: 048
  2. CELEBREX [Suspect]
     Route: 065
  3. TUMS [Concomitant]

REACTIONS (9)
  - Aphagia [Unknown]
  - Dyspepsia [Unknown]
  - Dyspepsia [Unknown]
  - Irritability [Unknown]
  - Back disorder [Unknown]
  - Abdominal pain [Unknown]
  - Abdominal discomfort [Unknown]
  - Abdominal pain upper [Unknown]
  - Drug dose omission [Unknown]
